FAERS Safety Report 6389422-X (Version None)
Quarter: 2009Q4

REPORT INFORMATION
  Report Type: 
  Country: None (occurrence: None)
  Receive Date: 20091001
  Receipt Date: 20090918
  Transmission Date: 20100525
  Serious: Yes (Death, Hospitalization)
  Sender: FDA-Public Use
  Company Number: MOZO-1000250

PATIENT
  Age: 49 Year
  Sex: Male
  Weight: 95.6 kg

DRUGS (4)
  1. MOZOBIL [Suspect]
     Indication: HAEMATOPOIETIC STEM CELL MOBILISATION
     Dosage: MCG/KG, QD, SUBCUTANEOUS
     Route: 058
     Dates: start: 20090205
  2. MITOXANTRONE          (MITOXANTRONE) [Concomitant]
  3. ETOPOSIDE [Concomitant]
  4. CYTARABINE [Concomitant]

REACTIONS (17)
  - AGITATION [None]
  - BACTERIAL SEPSIS [None]
  - BONE MARROW FAILURE [None]
  - BURKHOLDERIA CEPACIA COMPLEX INFECTION [None]
  - CATHETER SITE INFECTION [None]
  - CONFUSIONAL STATE [None]
  - CULTURE WOUND POSITIVE [None]
  - DIARRHOEA [None]
  - DIZZINESS [None]
  - OEDEMA PERIPHERAL [None]
  - PULMONARY ALVEOLAR HAEMORRHAGE [None]
  - PYREXIA [None]
  - RALES [None]
  - SPLEEN CONGESTION [None]
  - SPLENOMEGALY [None]
  - TACHYCARDIA [None]
  - THROMBOCYTOPENIA [None]
